FAERS Safety Report 17416211 (Version 1)
Quarter: 2020Q1

REPORT INFORMATION
  Report Type: Spontaneous
  Country: TR (occurrence: TR)
  Receive Date: 20200213
  Receipt Date: 20200213
  Transmission Date: 20200409
  Serious: Yes (Hospitalization)
  Sender: FDA-Public Use
  Company Number: TR-TASMAN PHARMA, INC.-2020TSM00019

PATIENT
  Age: 15 Year
  Sex: Female

DRUGS (1)
  1. CLOZAPINE. [Suspect]
     Active Substance: CLOZAPINE
     Dosage: 2500 MG, ONCE (TOOK 10 PIECES OF 250 MG TABLETS)
     Route: 065

REACTIONS (2)
  - Atrioventricular block complete [Not Recovered/Not Resolved]
  - Toxicity to various agents [Recovered/Resolved]
